FAERS Safety Report 19889780 (Version 1)
Quarter: 2021Q3

REPORT INFORMATION
  Report Type: Spontaneous
  Country: US (occurrence: US)
  Receive Date: 20210927
  Receipt Date: 20210927
  Transmission Date: 20211014
  Serious: Yes (Other)
  Sender: FDA-Public Use
  Company Number: US-GLAXOSMITHKLINE-US2021GSK199645

PATIENT
  Age: 43 Year
  Sex: Male

DRUGS (6)
  1. BENZATROPINE [Suspect]
     Active Substance: BENZTROPINE
     Indication: PRODUCT USED FOR UNKNOWN INDICATION
     Dosage: 2 MG, BID
  2. LURASIDONE [Suspect]
     Active Substance: LURASIDONE
     Indication: BIPOLAR I DISORDER
     Dosage: 80 MG, QD
  3. LAMICTAL [Suspect]
     Active Substance: LAMOTRIGINE
     Indication: BIPOLAR I DISORDER
     Dosage: 225 MG, BID
  4. OXCARBAZEPINE. [Suspect]
     Active Substance: OXCARBAZEPINE
     Indication: BIPOLAR I DISORDER
     Dosage: 600 MG, BID
  5. PROPRANOLOL [Concomitant]
     Active Substance: PROPRANOLOL HYDROCHLORIDE
     Indication: PRODUCT USED FOR UNKNOWN INDICATION
     Dosage: 40 MG, BID
  6. LITHIUM. [Suspect]
     Active Substance: LITHIUM
     Indication: BIPOLAR I DISORDER
     Dosage: 2100 MG (900/1200 MG)

REACTIONS (10)
  - Hypotonia [Unknown]
  - Sleep apnoea syndrome [Unknown]
  - Hypnagogic hallucination [Recovered/Resolved]
  - Restless legs syndrome [Unknown]
  - Parasomnia [Unknown]
  - Somnambulism [Unknown]
  - Sleep disorder [Unknown]
  - Sleep paralysis [Recovered/Resolved]
  - Enuresis [Unknown]
  - Aggression [Unknown]
